FAERS Safety Report 8097053-9 (Version None)
Quarter: 2012Q1

REPORT INFORMATION
  Report Type: 
  Country: None (occurrence: None)
  Receive Date: 20120131
  Receipt Date: 20120126
  Transmission Date: 20120608
  Serious: Yes (Other)
  Sender: FDA-Public Use
  Company Number: FR-AMGEN-FRASP2011065048

PATIENT
  Age: 69 Year
  Sex: Female

DRUGS (6)
  1. OMEPRAZOLE [Concomitant]
  2. NPLATE [Suspect]
     Indication: IDIOPATHIC THROMBOCYTOPENIC PURPURA
     Dosage: 540 MUG, QWK
     Dates: start: 20100201, end: 20111117
  3. VALSARTAN  AND HYDROCHLOROTHIAZIDE [Concomitant]
     Indication: HYPERTENSION
     Dosage: 160 UNK, UNK
  4. THYROID THERAPY [Concomitant]
     Indication: HYPERTHYROIDISM
  5. ATARAX [Concomitant]
     Dosage: 25 MG, UNK
  6. FLUTICASONE PROPIONATE/SALMETEROL [Concomitant]
     Dosage: 500 UNK, UNK

REACTIONS (9)
  - MYELOFIBROSIS [None]
  - EPISTAXIS [None]
  - PLATELET COUNT ABNORMAL [None]
  - PLATELET COUNT DECREASED [None]
  - RETICULIN INCREASED [None]
  - PANCYTOPENIA [None]
  - PETECHIAE [None]
  - THROMBOCYTOPENIA [None]
  - EAR HAEMORRHAGE [None]
